FAERS Safety Report 7971771-2 (Version None)
Quarter: 2011Q4

REPORT INFORMATION
  Report Type: 
  Country: None (occurrence: None)
  Receive Date: 20111212
  Receipt Date: 20111201
  Transmission Date: 20120403
  Serious: Yes (Other)
  Sender: FDA-Public Use
  Company Number: US-BAYER-2011-061254

PATIENT
  Age: 45 Year
  Sex: Female

DRUGS (6)
  1. ZEGERID [Concomitant]
  2. ALPRAZOLAM [Concomitant]
  3. YASMIN [Suspect]
     Indication: PREMENSTRUAL SYNDROME
     Dosage: UNK
     Dates: start: 20050504, end: 20051001
  4. YAZ [Suspect]
     Indication: PREMENSTRUAL SYNDROME
     Dosage: UNK
     Dates: start: 20071207, end: 20091001
  5. CYMBALTA [Concomitant]
  6. SINGULAIR [Concomitant]

REACTIONS (6)
  - PAIN [None]
  - OVARIAN MASS [None]
  - CHOLECYSTITIS CHRONIC [None]
  - OVARIAN ADENOMA [None]
  - GALLBLADDER DISORDER [None]
  - INJURY [None]
